FAERS Safety Report 9581461 (Version 1)
Quarter: 2013Q4

REPORT INFORMATION
  Report Type: Report from Study
  Country: TH (occurrence: TH)
  Receive Date: 20131002
  Receipt Date: 20131002
  Transmission Date: 20140711
  Serious: Yes (Hospitalization, Other)
  Sender: FDA-Public Use
  Company Number: PHHY2013TH105634

PATIENT
  Age: 63 Year
  Sex: Female
  Weight: 42.3 kg

DRUGS (1)
  1. GLIVEC [Suspect]
     Indication: GASTROINTESTINAL STROMAL TUMOUR
     Dosage: 400 MG, UNK

REACTIONS (5)
  - Meningitis bacterial [Recovered/Resolved with Sequelae]
  - Pyrexia [Unknown]
  - Sepsis [Unknown]
  - Deafness bilateral [Unknown]
  - Oedema [Unknown]
